FAERS Safety Report 10072427 (Version 1)
Quarter: 2014Q2

REPORT INFORMATION
  Report Type: Spontaneous
  Country: US (occurrence: None)
  Receive Date: 20140410
  Receipt Date: 20140410
  Transmission Date: 20141212
  Serious: Yes (Death)
  Sender: FDA-Public Use
  Company Number: None

PATIENT
  Age: 65 Year
  Sex: Male
  Weight: 126 kg

DRUGS (15)
  1. XARELTO [Suspect]
     Indication: DEEP VEIN THROMBOSIS
     Dosage: LESS THAN 3 WEEKS 15 MG BID ORAL
     Route: 048
  2. XARELTO [Suspect]
     Indication: PULMONARY EMBOLISM
     Dosage: LESS THAN 3 WEEKS 15 MG BID ORAL
     Route: 048
  3. MORPHINE [Concomitant]
  4. PROTONIX [Concomitant]
  5. ALBUTEROL [Concomitant]
  6. BISACODYL [Concomitant]
  7. GLIPIZIDE [Concomitant]
  8. NORCO [Concomitant]
  9. LEVSIN [Concomitant]
  10. AMITIZA [Concomitant]
  11. POLYETHYLENE GLYCOL [Concomitant]
  12. LASIX [Concomitant]
  13. DECADRON [Concomitant]
  14. ZOFRAN [Concomitant]
  15. SYNTHROID [Concomitant]

REACTIONS (1)
  - Cerebral haematoma [None]
